FAERS Safety Report 5838529-1 (Version None)
Quarter: 2008Q3

REPORT INFORMATION
  Report Type: 
  Country: None (occurrence: None)
  Receive Date: 20080808
  Receipt Date: 20080730
  Transmission Date: 20090109
  Serious: Yes (Hospitalization, Disabling, Congenital Anomaly)
  Sender: FDA-Public Use
  Company Number: FR-ASTRAZENECA-2006CG00995

PATIENT
  Sex: Male
  Weight: 2 kg

DRUGS (4)
  1. MOPRAL [Suspect]
     Route: 064
  2. CORTANCYL [Suspect]
     Indication: RHEUMATOID ARTHRITIS
     Route: 064
  3. DEDROGYL [Suspect]
     Route: 064
  4. ARAVA [Suspect]
     Indication: RHEUMATOID ARTHRITIS
     Route: 064
     Dates: start: 20040801, end: 20051003

REACTIONS (5)
  - PREMATURE BABY [None]
  - PULMONARY ARTERY STENOSIS CONGENITAL [None]
  - TRANSPOSITION OF THE GREAT VESSELS [None]
  - TRICUSPID VALVE INCOMPETENCE [None]
  - VENTRICULAR HYPOPLASIA [None]
